FAERS Safety Report 10398353 (Version 4)
Quarter: 2016Q1

REPORT INFORMATION
  Report Type: Spontaneous
  Country: US (occurrence: US)
  Receive Date: 20130815
  Receipt Date: 20160323
  Transmission Date: 20160525
  Serious: Yes (Hospitalization, Other)
  Sender: FDA-Public Use
  Company Number: ADR-2012-00789

PATIENT
  Age: 49 Year
  Sex: Male

DRUGS (6)
  1. UNKNOWN [Suspect]
     Active Substance: UNSPECIFIED INGREDIENT
     Route: 048
  2. BUPIVACAINE [Suspect]
     Active Substance: BUPIVACAINE
     Route: 037
  3. OXYCONTIN [Suspect]
     Active Substance: OXYCODONE HYDROCHLORIDE
     Dosage: 60MG/30MG TABLETS
     Route: 048
  4. BACLOFEN. [Suspect]
     Active Substance: BACLOFEN
     Dosage: 17.99MCG/DAY
     Route: 037
  5. CLONIDINE. [Suspect]
     Active Substance: CLONIDINE
     Dosage: 8.995MCG/DAY
     Route: 037
  6. FENTANYL. [Suspect]
     Active Substance: FENTANYL
     Dosage: 1799MCG/DAY
     Route: 037

REACTIONS (14)
  - Muscle spasms [None]
  - Sleep disorder [None]
  - Drug dependence [None]
  - Abasia [None]
  - Tremor [None]
  - Drug withdrawal syndrome [None]
  - Panic attack [None]
  - Back pain [None]
  - Gastrointestinal disorder [None]
  - Malaise [None]
  - No therapeutic response [None]
  - Confusional state [None]
  - Unevaluable event [None]
  - Pain [None]
